FAERS Safety Report 7767757-3 (Version None)
Quarter: 2011Q3

REPORT INFORMATION
  Report Type: 
  Country: None (occurrence: None)
  Receive Date: 20110922
  Receipt Date: 20110609
  Transmission Date: 20111222
  Serious: No
  Sender: FDA-Public Use
  Company Number: US-ASTRAZENECA-2011SE35392

PATIENT
  Age: 23 Year
  Sex: Male
  Weight: 149.7 kg

DRUGS (2)
  1. SEROQUEL [Suspect]
     Indication: DEPRESSION
     Route: 048
     Dates: start: 20050101
  2. SEROQUEL [Suspect]
     Dosage: CUTTING 100 MG TABLET IN HALF
     Route: 048

REACTIONS (5)
  - HEADACHE [None]
  - SOCIAL AVOIDANT BEHAVIOUR [None]
  - INSOMNIA [None]
  - IRRITABILITY [None]
  - WRONG TECHNIQUE IN DRUG USAGE PROCESS [None]
